FAERS Safety Report 12922266 (Version 1)
Quarter: 2016Q4

REPORT INFORMATION
  Report Type: Spontaneous
  Country: US (occurrence: US)
  Receive Date: 20161108
  Receipt Date: 20161108
  Transmission Date: 20170207
  Serious: No
  Sender: FDA-Public Use
  Company Number: US-009507513-1611USA003590

PATIENT

DRUGS (1)
  1. STERILE DILUENT [Suspect]
     Active Substance: WATER

REACTIONS (3)
  - No adverse event [Unknown]
  - Intercepted product selection error [Unknown]
  - Drug dispensing error [Unknown]
